FAERS Safety Report 9849684 (Version 1)
Quarter: 2014Q1

REPORT INFORMATION
  Report Type: Spontaneous
  Country: US (occurrence: None)
  Receive Date: 20140124
  Receipt Date: 20140124
  Transmission Date: 20141002
  Serious: Yes (Other)
  Sender: FDA-Public Use
  Company Number: SYM-2014-15120

PATIENT
  Age: 34 Year
  Sex: Male

DRUGS (2)
  1. XENAZINE [Suspect]
     Indication: DYSKINESIA
     Dosage: 25 MG, 3 IN 1 D, ORAL
     Route: 048
     Dates: start: 20121002
  2. XENAZINE [Suspect]
     Indication: OFF LABEL USE
     Dosage: 25 MG, 3 IN 1 D, ORAL
     Route: 048
     Dates: start: 20121002

REACTIONS (1)
  - Renal cyst [None]
